FAERS Safety Report 8555119-0 (Version None)
Quarter: 2012Q3

REPORT INFORMATION
  Report Type: 
  Country: None (occurrence: None)
  Receive Date: 20120731
  Receipt Date: 20120531
  Transmission Date: 20120928
  Serious: Yes (Hospitalization)
  Sender: FDA-Public Use
  Company Number: DE-JNJFOC-20120405527

PATIENT
  Sex: Male

DRUGS (10)
  1. ACETYLSALICYLIC ACID SRT [Suspect]
     Indication: CORONARY ARTERY DISEASE
  2. SIMVASTATIN [Concomitant]
  3. ACETYLCYSTEINE [Concomitant]
  4. TILIDIN N [Concomitant]
  5. GLIMEPIRIDE [Concomitant]
     Indication: DIABETES MELLITUS
  6. DARIFENACIN [Concomitant]
  7. LORAZEPAM [Concomitant]
     Dosage: OM
  8. NITROGLYCERIN [Concomitant]
  9. DILTIAZEM [Concomitant]
  10. XARELTO [Suspect]
     Indication: PRODUCT USED FOR UNKNOWN INDICATION
     Route: 048
     Dates: start: 20120301

REACTIONS (5)
  - GASTROINTESTINAL HAEMORRHAGE [None]
  - HAEMOGLOBIN DECREASED [None]
  - DUODENITIS [None]
  - EPISTAXIS [None]
  - GASTROINTESTINAL MUCOSAL DISORDER [None]
